FAERS Safety Report 24066643 (Version 3)
Quarter: 2024Q3

REPORT INFORMATION
  Report Type: Report from Study
  Country: US (occurrence: US)
  Receive Date: 20240709
  Receipt Date: 20240717
  Transmission Date: 20241017
  Serious: Yes (Hospitalization, Other)
  Sender: ROCHE
  Company Number: US-ROCHE-10000006211

PATIENT
  Age: 50 Year
  Sex: Male

DRUGS (14)
  1. OCREVUS [Suspect]
     Active Substance: OCRELIZUMAB
     Indication: Primary progressive multiple sclerosis
     Route: 065
  2. BUPROPION HYDROCHLORIDE [Concomitant]
     Active Substance: BUPROPION HYDROCHLORIDE
  3. POLYETHYLENE GLYCOL 3350 [Concomitant]
     Active Substance: POLYETHYLENE GLYCOL 3350
  4. BACLOFEN [Concomitant]
     Active Substance: BACLOFEN
  5. ALPRAZOLAM [Concomitant]
     Active Substance: ALPRAZOLAM
  6. PREGABALIN [Concomitant]
     Active Substance: PREGABALIN
  7. BUPROPION [Concomitant]
     Active Substance: BUPROPION
  8. CHOLECALCIFEROL [Concomitant]
     Active Substance: CHOLECALCIFEROL
  9. CITALOPRAM [Concomitant]
     Active Substance: CITALOPRAM\CITALOPRAM HYDROBROMIDE
  10. LOPERAMIDE [Concomitant]
     Active Substance: LOPERAMIDE
  11. ACETAMINOPHEN [Concomitant]
     Active Substance: ACETAMINOPHEN
  12. EPINEPHRINE [Concomitant]
     Active Substance: EPINEPHRINE
  13. DIPHENHYDRAMINE [Concomitant]
     Active Substance: DIPHENHYDRAMINE
  14. METHYLPREDNISOLONE [Concomitant]
     Active Substance: METHYLPREDNISOLONE

REACTIONS (22)
  - Hemiparesis [Unknown]
  - Multiple sclerosis [Unknown]
  - Bladder spasm [Unknown]
  - Lymphoedema [Unknown]
  - Sinusitis [Unknown]
  - Urinary tract infection [Unknown]
  - Pollakiuria [Unknown]
  - Back pain [Unknown]
  - Urinary retention [Unknown]
  - White blood cell count increased [Unknown]
  - Red blood cell count increased [Unknown]
  - Paraparesis [Unknown]
  - Vitamin D deficiency [Unknown]
  - Neurogenic bladder [Unknown]
  - Muscle spasms [Unknown]
  - Musculoskeletal stiffness [Unknown]
  - Muscular weakness [Unknown]
  - Drug ineffective [Unknown]
  - Fall [Unknown]
  - Hydromyelia [Unknown]
  - Vertebral foraminal stenosis [Unknown]
  - Magnetic resonance imaging spinal abnormal [Unknown]
